FAERS Safety Report 19951212 (Version 1)
Quarter: 2021Q4

REPORT INFORMATION
  Report Type: Spontaneous
  Country: NL (occurrence: NL)
  Receive Date: 20211013
  Receipt Date: 20211013
  Transmission Date: 20220303
  Serious: Yes (Hospitalization)
  Sender: FDA-Public Use
  Company Number: None

PATIENT
  Age: 73 Year
  Sex: Female
  Weight: 50.4 kg

DRUGS (9)
  1. ATORVASTATIN [Interacting]
     Active Substance: ATORVASTATIN
     Indication: Acute myocardial infarction
     Dosage: 40 MILLIGRAM (TABLET, 40 MG (MILLIGRAM), 2 DD 40 MG)
     Dates: start: 202103
  2. ATORVASTATIN [Interacting]
     Active Substance: ATORVASTATIN
     Dosage: 20 MILLIGRAM (WHICH WAS HALVED ON 10-6-21 BY THE GP)
     Dates: start: 20210610
  3. METRONIDAZOLE [Interacting]
     Active Substance: METRONIDAZOLE
     Indication: Dientamoeba infection
     Dosage: 500 MILLIGRAM, Q8H (3X A DAY 1 PIECE)
     Dates: start: 20210604, end: 20210607
  4. NITROGLYCERIN [Concomitant]
     Active Substance: NITROGLYCERIN
     Dosage: UNK (SPRAY, 0,4 MG/DOSIS (MILLIGRAM PER DOSIS)
  5. PANTOPRAZOLE [Concomitant]
     Active Substance: PANTOPRAZOLE
     Dosage: UNK (MAAGSAPRESISTENTE TABLET, 40 MG (MILLIGRAM)
  6. ASPIRIN [Concomitant]
     Active Substance: ASPIRIN
     Dosage: UNK (TABLET, 80 MG (MILLIGRAM)
  7. TICAGRELOR [Concomitant]
     Active Substance: TICAGRELOR
     Dosage: UNK (TABLET, 90 MG (MILLIGRAM)
  8. METOPROLOL SUCCINATE [Concomitant]
     Active Substance: METOPROLOL SUCCINATE
     Dosage: UNK (TABLET MET GEREGULEERDE AFGIFTE, 50 MG (MILLIGRAM)
  9. PERINDOPRIL ERBUMINE [Concomitant]
     Active Substance: PERINDOPRIL ERBUMINE
     Dosage: UNK (TABLET, 2 MG (MILLIGRAM)

REACTIONS (3)
  - Acute kidney injury [Recovering/Resolving]
  - Rhabdomyolysis [Recovering/Resolving]
  - Drug interaction [Unknown]

NARRATIVE: CASE EVENT DATE: 20210605
